FAERS Safety Report 15734478 (Version 3)
Quarter: 2019Q1

REPORT INFORMATION
  Report Type: Spontaneous
  Country: DE (occurrence: DE)
  Receive Date: 20181218
  Receipt Date: 20190210
  Transmission Date: 20190417
  Serious: Yes (Death, Hospitalization, Other)
  Sender: FDA-Public Use
  Company Number: PHHY2018DE185854

PATIENT
  Sex: Female
  Weight: 64 kg

DRUGS (2)
  1. ZYKADIA [Suspect]
     Active Substance: CERITINIB
     Indication: NEUROBLASTOMA
     Dosage: 150 MG, TID
     Route: 048
     Dates: start: 201605, end: 201812
  2. ZYKADIA [Suspect]
     Active Substance: CERITINIB
     Indication: METASTASES TO BONE
     Dosage: 150 MG, UNK
     Route: 065

REACTIONS (9)
  - Metastases to central nervous system [Unknown]
  - Vomiting [Unknown]
  - Platelet count decreased [Not Recovered/Not Resolved]
  - Nausea [Not Recovered/Not Resolved]
  - Spinal cord compression [Unknown]
  - Neuroblastoma [Fatal]
  - Oesophageal haemorrhage [Recovered/Resolved]
  - Thrombocytopenia [Unknown]
  - Product use in unapproved indication [Unknown]

NARRATIVE: CASE EVENT DATE: 2018
